FAERS Safety Report 6379772-5 (Version None)
Quarter: 2009Q3

REPORT INFORMATION
  Report Type: 
  Country: None (occurrence: None)
  Receive Date: 20090924
  Receipt Date: 20090924
  Transmission Date: 20100115
  Serious: No
  Sender: FDA-Public Use
  Company Number: None

PATIENT
  Age: 33 Year
  Sex: Female
  Weight: 77.1115 kg

DRUGS (1)
  1. ADDERALL XR 20 [Suspect]
     Indication: ATTENTION DEFICIT/HYPERACTIVITY DISORDER
     Dosage: 2 CAPSULES 3 TIMES PO
     Route: 048
     Dates: start: 20060101, end: 20090923

REACTIONS (7)
  - DAYDREAMING [None]
  - DRUG INEFFECTIVE [None]
  - HYPERPHAGIA [None]
  - HYPERSOMNIA [None]
  - MALAISE [None]
  - MEMORY IMPAIRMENT [None]
  - PRODUCT SUBSTITUTION ISSUE [None]
